FAERS Safety Report 8500807 (Version 7)
Quarter: 2012Q4

REPORT INFORMATION
  Report Type: Spontaneous
  Country: US (occurrence: None)
  Receive Date: 20120330
  Receipt Date: 20120925
  Transmission Date: 20130627
  Serious: Yes (Hospitalization, Other)
  Sender: FDA-Public Use
  Company Number: 2011-000188

PATIENT
  Age: 54 Year
  Sex: Female

DRUGS (18)
  1. ACTONEL [Suspect]
     Indication: OSTEOPOROSIS
     Dosage: 35 MG ONCE WEEKLY, ORAL
     Route: 048
     Dates: start: 200611, end: 200808
  2. ACTONEL [Suspect]
     Indication: OSTEOPENIA
     Dosage: 35 MG ONCE WEEKLY, ORAL
     Route: 048
     Dates: start: 200611, end: 200808
  3. ACTONEL [Suspect]
     Indication: OSTEOPOROSIS
     Dosage: 150 MG ONCE MONTHLY, ORAL
     Route: 048
     Dates: start: 20081230, end: 201003
  4. ACTONEL [Suspect]
     Indication: OSTEOPENIA
     Dosage: 150 MG ONCE MONTHLY, ORAL
     Route: 048
     Dates: start: 20081230, end: 201003
  5. FOSAMAX [Suspect]
     Indication: OSTEOPOROSIS
     Dosage: 70 MG ONCE WEEKLY, ORAL
     Route: 048
     Dates: start: 200208, end: 20061120
  6. FOSAMAX [Suspect]
     Indication: OSTEOPENIA
     Dosage: 70 MG ONCE WEEKLY, ORAL
     Route: 048
     Dates: start: 200208, end: 20061120
  7. VITAMINS /90003601/ [Concomitant]
  8. ASPIRIN [Concomitant]
  9. VITAMIN C /0000800/1 (ASCORBIC ACID) [Concomitant]
  10. VITAMIN E /00110501/ (TOCOPHEROL) [Concomitant]
  11. SIMVASTATIN [Concomitant]
  12. CALCIUM CITRATE (CALCIUM CITRATE) [Concomitant]
  13. COLECALCIFEROL (COLECALCIFEROL) [Concomitant]
  14. CALTRATE WITH VITAMIN D [Concomitant]
  15. FISH OIL (FISH OIL) [Concomitant]
  16. NIACIN [Concomitant]
  17. MUCINEX [Concomitant]
  18. ALLEGRA [Concomitant]

REACTIONS (22)
  - Fracture displacement [None]
  - FALL [None]
  - ATYPICAL FEMUR FRACTURE [None]
  - Stress fracture [None]
  - Multiple fractures [None]
  - LOW TURNOVER OSTEOPATHY [None]
  - BONE DISORDER [None]
  - PAIN [None]
  - ARTHRALGIA [None]
  - JOINT INJURY [None]
  - MUSCULAR WEAKNESS [None]
  - GAIT DISTURBANCE [None]
  - ARTHROPATHY [None]
  - HYPERCALCIURIA [None]
  - UPPER LIMB FRACTURE [None]
  - WRIST FRACTURE [None]
  - UTERINE DILATION AND CURETTAGE [None]
  - MENOPAUSE [None]
  - FOOT FRACTURE [None]
  - VARICOSE VEIN OPERATION [None]
  - JOINT DISLOCATION [None]
  - Fracture delayed union [None]
